FAERS Safety Report 6114150-5 (Version None)
Quarter: 2009Q1

REPORT INFORMATION
  Report Type: 
  Country: None (occurrence: None)
  Receive Date: 20090312
  Receipt Date: 20080522
  Transmission Date: 20090719
  Serious: No
  Sender: FDA-Public Use
  Company Number: US-ABBOTT-08P-163-0453048-00

PATIENT
  Sex: Male
  Weight: 74.91 kg

DRUGS (5)
  1. DEPAKOTE [Suspect]
     Indication: HYPOMANIA
     Dosage: WANTS TO INCREASE TO TWICE DAILY
     Dates: start: 20080520
  2. DEPAKOTE [Suspect]
     Indication: BIPOLAR DISORDER
  3. TRAZODONE HCL [Suspect]
     Indication: HYPOMANIA
     Dates: start: 20080520
  4. TRAZODONE HCL [Suspect]
     Indication: BIPOLAR DISORDER
  5. TRAZODONE HCL [Concomitant]
     Indication: INSOMNIA
     Route: 048
     Dates: start: 20080520

REACTIONS (5)
  - FATIGUE [None]
  - MALAISE [None]
  - NAUSEA [None]
  - SLUGGISHNESS [None]
  - SOMNOLENCE [None]
